FAERS Safety Report 19184922 (Version 2)
Quarter: 2022Q2

REPORT INFORMATION
  Report Type: Spontaneous
  Country: IN (occurrence: IN)
  Receive Date: 20210427
  Receipt Date: 20220517
  Transmission Date: 20220721
  Serious: Yes (Hospitalization)
  Sender: FDA-Public Use
  Company Number: IN-LUPIN LIMITED-2021-05388

PATIENT
  Age: 46 Year
  Sex: Female

DRUGS (14)
  1. RANITIDINE [Interacting]
     Active Substance: RANITIDINE
     Indication: Product used for unknown indication
     Dosage: 50 MILLIGRAM, BID
     Route: 042
  2. DIAZEPAM [Suspect]
     Active Substance: DIAZEPAM
     Indication: Generalised tonic-clonic seizure
     Dosage: 10 MILLIGRAM, BID
     Route: 065
  3. PHENYTOIN SODIUM [Interacting]
     Active Substance: PHENYTOIN SODIUM
     Indication: Generalised tonic-clonic seizure
     Dosage: 100 MILLIGRAM, INTRAVENOUS INFUSION
     Route: 042
  4. PHENYTOIN SODIUM [Interacting]
     Active Substance: PHENYTOIN SODIUM
     Dosage: 200 MILLIGRAM, HOURS OF SLEEP, TABLET
     Route: 048
  5. PANTOPRAZOLE [Suspect]
     Active Substance: PANTOPRAZOLE
     Indication: Vomiting
     Dosage: 40 MILLIGRAM, BID, INJECTION
     Route: 065
  6. ONDANSETRON [Suspect]
     Active Substance: ONDANSETRON
     Indication: Vomiting
     Dosage: 8 MILLIGRAM, BID, INJECTION
     Route: 065
  7. SODIUM CHLORIDE [Concomitant]
     Active Substance: SODIUM CHLORIDE
     Indication: Drug therapy
     Dosage: WITH PHENYTOIN, INTRAVENOUS INFUSION
     Route: 042
  8. RINGER LACTATED [Concomitant]
     Indication: Product used for unknown indication
     Dosage: IV FLUIDS RL 1 PINT AT 100 ML/HR
     Route: 042
  9. METFORMIN [Concomitant]
     Active Substance: METFORMIN HYDROCHLORIDE
     Indication: Type 2 diabetes mellitus
     Dosage: 500 MG, BID
     Route: 065
  10. OMEPRAZOLE [Concomitant]
     Active Substance: OMEPRAZOLE
     Indication: Product used for unknown indication
     Dosage: 20 MG, BID
     Route: 065
  11. DOMPERIDONE [Concomitant]
     Active Substance: DOMPERIDONE
     Indication: Product used for unknown indication
     Dosage: 10 MG, BID
     Route: 065
  12. CETIRIZINE HYDROCHLORIDE [Concomitant]
     Active Substance: CETIRIZINE HYDROCHLORIDE
     Indication: Product used for unknown indication
     Dosage: 10 MG, QD (AT NIGHT)
     Route: 065
  13. ALBUTEROL [Concomitant]
     Active Substance: ALBUTEROL
     Indication: Dyspnoea
     Dosage: UNK, TID (8TH HOURLY)
     Route: 065
  14. AZITHROMYCIN [Concomitant]
     Active Substance: AZITHROMYCIN
     Indication: Product used for unknown indication
     Dosage: 500 MG, QD
     Route: 065

REACTIONS (3)
  - Drug interaction [Unknown]
  - Drug ineffective [Unknown]
  - Toxicity to various agents [Unknown]
